FAERS Safety Report 4777435-0 (Version None)
Quarter: 2005Q3

REPORT INFORMATION
  Report Type: 
  Country: None (occurrence: None)
  Receive Date: 20050915
  Receipt Date: 20050831
  Transmission Date: 20060218
  Serious: Yes (Other)
  Sender: FDA-Public Use
  Company Number: USA0506101123

PATIENT
  Age: 18 Year
  Sex: Male

DRUGS (1)
  1. HUMATROPE [Suspect]
     Indication: GROWTH HORMONE DEFICIENCY
     Dosage: 2.7 MG/1 DAY
     Dates: start: 19991006, end: 20021201

REACTIONS (1)
  - CARCINOID TUMOUR OF THE APPENDIX [None]
